FAERS Safety Report 7319479-0 (Version None)
Quarter: 2011Q1

REPORT INFORMATION
  Report Type: 
  Country: None (occurrence: None)
  Receive Date: 20110228
  Receipt Date: 20100413
  Transmission Date: 20110831
  Serious: No
  Sender: FDA-Public Use
  Company Number: A0854796A

PATIENT
  Age: 70 Year
  Sex: Female

DRUGS (2)
  1. NO CONCURRENT MEDICATION [Concomitant]
  2. LAMICTAL [Suspect]
     Route: 048
     Dates: start: 20090625

REACTIONS (3)
  - STICKY SKIN [None]
  - PARAESTHESIA ORAL [None]
  - DYSGEUSIA [None]
